FAERS Safety Report 4820082-2 (Version None)
Quarter: 2005Q4

REPORT INFORMATION
  Report Type: 
  Country: None (occurrence: None)
  Receive Date: 20051103
  Receipt Date: 20050816
  Transmission Date: 20060501
  Serious: Yes (Hospitalization)
  Sender: FDA-Public Use
  Company Number: US-ABBOTT-05P-163-0308431-00

PATIENT
  Sex: Female
  Weight: 110 kg

DRUGS (5)
  1. HUMIRA 40 MG/ 0.8 ML PRE-FILLED SYRINGE [Suspect]
     Indication: RHEUMATOID ARTHRITIS
     Route: 058
     Dates: start: 20050601, end: 20050806
  2. QUETIAPINE FUMARATE [Concomitant]
     Indication: DEPRESSION
     Route: 048
  3. ACTOS [Concomitant]
     Indication: DIABETES MELLITUS
     Route: 048
  4. RAMIPRIL [Concomitant]
     Indication: DEPRESSION
     Route: 048
  5. UNKNOWN HEART MEDICATION [Concomitant]
     Indication: CARDIAC FAILURE CONGESTIVE
     Route: 048

REACTIONS (5)
  - AMBLYOPIA [None]
  - DEPRESSION [None]
  - HEADACHE [None]
  - JOINT CONTRACTURE [None]
  - NAUSEA [None]
